FAERS Safety Report 23211569 (Version 1)
Quarter: 2023Q4

REPORT INFORMATION
  Report Type: Spontaneous
  Country: US (occurrence: US)
  Receive Date: 20231121
  Receipt Date: 20231121
  Transmission Date: 20240110
  Serious: Yes (Other)
  Sender: FDA-Public Use
  Company Number: US-ASCENDIS PHARMA-2023US003800

PATIENT

DRUGS (2)
  1. SKYTROFA [Suspect]
     Active Substance: LONAPEGSOMATROPIN-TCGD
     Indication: Hypopituitarism
     Dosage: 7.6 MG, WEEKLY
     Route: 058
     Dates: end: 20230504
  2. XOPENEX HFA [Concomitant]
     Active Substance: LEVALBUTEROL TARTRATE
     Indication: Product used for unknown indication
     Dosage: 45 MICROGRAM HFA AER AD

REACTIONS (3)
  - Pituitary tumour [Unknown]
  - Headache [Recovering/Resolving]
  - Injection site pain [Unknown]

NARRATIVE: CASE EVENT DATE: 20230504
